FAERS Safety Report 4977829-4 (Version None)
Quarter: 2006Q1

REPORT INFORMATION
  Report Type: 
  Country: None (occurrence: None)
  Receive Date: 20060215
  Receipt Date: 20051010
  Transmission Date: 20060701
  Serious: Yes (Death, Other)
  Sender: FDA-Public Use
  Company Number: MC200500904

PATIENT
  Age: 57 Year
  Sex: Male
  Weight: 78 kg

DRUGS (4)
  1. ANGIOMAX [Suspect]
     Indication: ARTERIOGRAM CORONARY
     Dosage: 0.75 MG/KG, BOLUS, IV BOLUS
     Route: 040
     Dates: start: 20050928, end: 20050928
  2. ANGIOMAX [Suspect]
     Dosage: 1.75 MG/KG/HR,INTRAVENOUS ; 0.2 MG/KG/HR, INTRAVENOUS
     Route: 042
     Dates: start: 20050928
  3. NITROGLYCERIN ^A.L.^ (GLYCERYL TRINITRATE) [Concomitant]
  4. VERSED [Concomitant]

REACTIONS (2)
  - CHEST PAIN [None]
  - STENT OCCLUSION [None]
